FAERS Safety Report 6497584-9 (Version None)
Quarter: 2009Q4

REPORT INFORMATION
  Report Type: 
  Country: None (occurrence: None)
  Receive Date: 20091215
  Receipt Date: 20091209
  Transmission Date: 20100525
  Serious: Yes (Hospitalization)
  Sender: FDA-Public Use
  Company Number: FR-SANOFI-AVENTIS-2009SA007680

PATIENT
  Age: 50 Year
  Sex: Female

DRUGS (3)
  1. RILUTEK [Suspect]
     Indication: AMYOTROPHIC LATERAL SCLEROSIS
     Route: 048
  2. MIOREL [Suspect]
     Indication: MUSCLE TWITCHING
     Route: 048
     Dates: end: 20080716
  3. LIORESAL ^NOVARTIS^ [Concomitant]

REACTIONS (2)
  - CYANOSIS [None]
  - SULPHAEMOGLOBINAEMIA [None]
